FAERS Safety Report 6623869-9 (Version None)
Quarter: 2010Q1

REPORT INFORMATION
  Report Type: 
  Country: None (occurrence: None)
  Receive Date: 20100223
  Receipt Date: 20091118
  Transmission Date: 20100710
  Serious: No
  Sender: FDA-Public Use
  Company Number: 8054947

PATIENT
  Sex: Male
  Weight: 56.8 kg

DRUGS (3)
  1. CERTOLIZUMAB PEGOL                                        (UCB, INC) [Suspect]
     Indication: CROHN'S DISEASE
     Dosage: SUBCUTANEOUS
     Route: 058
     Dates: start: 20090825
  2. PREDNISONE [Concomitant]
  3. ENTOCORT EC [Concomitant]

REACTIONS (4)
  - INFLAMMATION [None]
  - PYREXIA [None]
  - URINARY TRACT PAIN [None]
  - WEIGHT DECREASED [None]
